FAERS Safety Report 8185914-1 (Version None)
Quarter: 2012Q1

REPORT INFORMATION
  Report Type: 
  Country: None (occurrence: None)
  Receive Date: 20120305
  Receipt Date: 20120223
  Transmission Date: 20120608
  Serious: Yes (Hospitalization)
  Sender: FDA-Public Use
  Company Number: BR-ASTRAZENECA-2011SE42018

PATIENT
  Age: 60 Year
  Sex: Female
  Weight: 79 kg

DRUGS (5)
  1. SYNTHROID [Concomitant]
     Indication: HYPOTHYROIDISM
     Route: 048
     Dates: start: 20010101
  2. ATACAND HCT [Suspect]
     Dosage: 16/12.5 MG
     Route: 048
     Dates: start: 20110701
  3. CANDESARTAN GENERIC (SANDOZ) [Suspect]
     Indication: HYPERTENSION
     Route: 048
     Dates: start: 20101101, end: 20110701
  4. ATACAND HCT [Suspect]
     Indication: HYPERTENSION
     Dosage: 16/12.5 MG
     Route: 048
     Dates: start: 20080101, end: 20101101
  5. CRESTOR [Suspect]
     Indication: BLOOD CHOLESTEROL INCREASED
     Route: 048
     Dates: start: 20111001

REACTIONS (9)
  - CHEST PAIN [None]
  - NECK PAIN [None]
  - HEADACHE [None]
  - BLOOD PRESSURE INCREASED [None]
  - PROCEDURAL PAIN [None]
  - BLOOD CHOLESTEROL INCREASED [None]
  - SJOGREN'S SYNDROME [None]
  - DRUG INEFFECTIVE [None]
  - PNEUMOTHORAX [None]
